FAERS Safety Report 9031954 (Version 1)
Quarter: 2013Q1

REPORT INFORMATION
  Report Type: Spontaneous
  Country: US (occurrence: US)
  Receive Date: 20130125
  Receipt Date: 20130125
  Transmission Date: 20140127
  Serious: Yes (Other)
  Sender: FDA-Public Use
  Company Number: US-JNJFOC-20130109870

PATIENT
  Sex: Male
  Weight: 38.56 kg

DRUGS (1)
  1. CONCERTA [Suspect]
     Indication: ATTENTION DEFICIT/HYPERACTIVITY DISORDER
     Route: 048
     Dates: start: 2009

REACTIONS (5)
  - Depression [Not Recovered/Not Resolved]
  - Migraine [Not Recovered/Not Resolved]
  - Educational problem [Not Recovered/Not Resolved]
  - Medication error [Not Recovered/Not Resolved]
  - Vomiting [Not Recovered/Not Resolved]
